FAERS Safety Report 18365800 (Version 4)
Quarter: 2021Q2

REPORT INFORMATION
  Report Type: Spontaneous
  Country: US (occurrence: US)
  Receive Date: 20201009
  Receipt Date: 20210409
  Transmission Date: 20210717
  Serious: Yes (Death)
  Sender: FDA-Public Use
  Company Number: US-KARYOPHARM-2020KPT001010

PATIENT

DRUGS (4)
  1. XPOVIO [Suspect]
     Active Substance: SELINEXOR
     Indication: PLASMA CELL MYELOMA
     Dosage: 80 MG, 2X/WEEK
     Route: 048
     Dates: start: 20200825, end: 20200908
  2. XPOVIO [Suspect]
     Active Substance: SELINEXOR
     Dosage: 80 MG, 2X/WEEK
     Route: 048
  3. DEXAMETHASONE. [Concomitant]
     Active Substance: DEXAMETHASONE
     Indication: PRODUCT USED FOR UNKNOWN INDICATION
  4. ONDANSETRON HCL [Concomitant]
     Active Substance: ONDANSETRON HYDROCHLORIDE
     Indication: NAUSEA

REACTIONS (12)
  - Decreased appetite [Not Recovered/Not Resolved]
  - Death [Fatal]
  - Swelling [Unknown]
  - Depression [Not Recovered/Not Resolved]
  - Plasma cell myeloma [Unknown]
  - Constipation [Recovering/Resolving]
  - Amnesia [Recovering/Resolving]
  - Nausea [Not Recovered/Not Resolved]
  - Dehydration [Recovering/Resolving]
  - Thrombocytopenia [Not Recovered/Not Resolved]
  - Diarrhoea [Recovering/Resolving]
  - Confusional state [Recovering/Resolving]

NARRATIVE: CASE EVENT DATE: 2020
